FAERS Safety Report 16269928 (Version 1)
Quarter: 2019Q2

REPORT INFORMATION
  Report Type: Report from Study
  Country: AU (occurrence: AU)
  Receive Date: 20190503
  Receipt Date: 20190503
  Transmission Date: 20190711
  Serious: Yes (Other)
  Sender: FDA-Public Use
  Company Number: AU-ROCHE-2310983

PATIENT
  Age: 70 Year
  Sex: Female

DRUGS (35)
  1. DEXAMETHASONE. [Concomitant]
     Active Substance: DEXAMETHASONE
  2. CIPROFLOXACIN. [Concomitant]
     Active Substance: CIPROFLOXACIN
  3. VITAMIN C [Concomitant]
     Active Substance: ASCORBIC ACID
  4. VANCOMYCIN [Concomitant]
     Active Substance: VANCOMYCIN
  5. HEPARIN [Concomitant]
     Active Substance: HEPARIN SODIUM
  6. PANTOPRAZOLE [Concomitant]
     Active Substance: PANTOPRAZOLE
  7. ANTITHYMOCYTE IMMUNOGLOBULIN [Concomitant]
     Active Substance: THYMOCYTE IMMUNE GLOBULIN NOS
  8. CANDESARTAN. [Concomitant]
     Active Substance: CANDESARTAN
  9. ONDANSETRON [Concomitant]
     Active Substance: ONDANSETRON
  10. METARAMINOL [Concomitant]
     Active Substance: METARAMINOL
  11. RESONIUM [Concomitant]
     Active Substance: SODIUM POLYSTYRENE SULFONATE
  12. METHYLPREDNISOLONE. [Concomitant]
     Active Substance: METHYLPREDNISOLONE
  13. HYDROCORTISONE. [Concomitant]
     Active Substance: HYDROCORTISONE
  14. OXYCODONE [Concomitant]
     Active Substance: OXYCODONE
  15. NORMAL SALINE [Concomitant]
     Active Substance: SODIUM CHLORIDE
  16. AMLODIPINE [Concomitant]
     Active Substance: AMLODIPINE BESYLATE
  17. MYCOPHENOLATE MOFETIL. [Suspect]
     Active Substance: MYCOPHENOLATE MOFETIL
     Indication: IMMUNOSUPPRESSION
     Route: 065
  18. BLINDED QPI-1002 [Suspect]
     Active Substance: TEPRASIRAN
     Indication: DELAYED GRAFT FUNCTION
     Dosage: SINGLE DOSE
     Route: 042
  19. PARACETAMOL [Concomitant]
     Active Substance: ACETAMINOPHEN
  20. CETRIZINE [Concomitant]
     Active Substance: CETIRIZINE HYDROCHLORIDE
  21. DARBEPOETIN ALFA [Concomitant]
     Active Substance: DARBEPOETIN ALFA
  22. CALCIUM CARBONATE. [Concomitant]
     Active Substance: CALCIUM CARBONATE
  23. MANNITOL. [Concomitant]
     Active Substance: MANNITOL
  24. VALGANCICLOVIR. [Concomitant]
     Active Substance: VALGANCICLOVIR
  25. FOLIC ACID. [Concomitant]
     Active Substance: FOLIC ACID
  26. METOPROLOL. [Concomitant]
     Active Substance: METOPROLOL
  27. TAZOCIN [Concomitant]
     Active Substance: PIPERACILLIN SODIUM\TAZOBACTAM SODIUM
  28. BACTRIM [Concomitant]
     Active Substance: SULFAMETHOXAZOLE\TRIMETHOPRIM
  29. AMPHOTERICIN [Concomitant]
     Active Substance: AMPHOTERICIN B
  30. ALENDRONATE [Concomitant]
     Active Substance: ALENDRONATE SODIUM
  31. ASPIRIN [ACETYLSALICYLIC ACID] [Concomitant]
     Active Substance: ASPIRIN
  32. COLOXYL WITH SENNA [Concomitant]
     Active Substance: DOCUSATE\SENNOSIDES
  33. FENTANYL. [Concomitant]
     Active Substance: FENTANYL
  34. TACROLIMUS. [Concomitant]
     Active Substance: TACROLIMUS
  35. PREDNISOLONE. [Concomitant]
     Active Substance: PREDNISOLONE

REACTIONS (2)
  - Viraemia [Recovered/Resolved]
  - BK polyomavirus test positive [Recovering/Resolving]

NARRATIVE: CASE EVENT DATE: 20161004
